FAERS Safety Report 15507097 (Version 2)
Quarter: 2018Q4

REPORT INFORMATION
  Report Type: Report from Study
  Country: US (occurrence: US)
  Receive Date: 20181016
  Receipt Date: 20181121
  Transmission Date: 20190205
  Serious: Yes (Life-Threatening, Hospitalization, Other)
  Sender: FDA-Public Use
  Company Number: US-BRISTOL-MYERS SQUIBB COMPANY-BMS-2018-094977

PATIENT
  Age: 45 Year
  Sex: Female
  Weight: 70.3 kg

DRUGS (1)
  1. NIVOLUMAB [Suspect]
     Active Substance: NIVOLUMAB
     Indication: T-CELL LYMPHOMA
     Dosage: 240 MG, Q2WK
     Route: 042
     Dates: start: 20180913

REACTIONS (2)
  - Staphylococcal infection [Unknown]
  - Jejunal perforation [Unknown]

NARRATIVE: CASE EVENT DATE: 20181008
